FAERS Safety Report 7010438-4 (Version None)
Quarter: 2010Q3

REPORT INFORMATION
  Report Type: 
  Country: None (occurrence: None)
  Receive Date: 20100923
  Receipt Date: 20100914
  Transmission Date: 20110219
  Serious: Yes (Hospitalization, Other)
  Sender: FDA-Public Use
  Company Number: JP-PFIZER INC-2010094399

PATIENT
  Age: 81 Year
  Sex: Female

DRUGS (5)
  1. UNASYN [Suspect]
     Indication: PNEUMONIA
     Route: 041
  2. CRAVIT [Concomitant]
  3. PURSENNID [Concomitant]
  4. MYSLEE [Concomitant]
  5. PROTECADIN [Concomitant]

REACTIONS (1)
  - HEPATITIS [None]
